FAERS Safety Report 5662272-5 (Version None)
Quarter: 2008Q1

REPORT INFORMATION
  Report Type: 
  Country: None (occurrence: None)
  Receive Date: 20080312
  Receipt Date: 20080307
  Transmission Date: 20080703
  Serious: Yes (Hospitalization)
  Sender: FDA-Public Use
  Company Number: AU-MERCK-0803AUS00091

PATIENT
  Age: 67 Year
  Sex: Male

DRUGS (6)
  1. FOSAMAX [Suspect]
     Indication: OSTEOPOROSIS
     Route: 048
     Dates: start: 20070101, end: 20070519
  2. CELECOXIB [Concomitant]
     Indication: ANALGESIA
     Route: 048
     Dates: start: 20060101
  3. PERINDOPRIL ARGININE [Concomitant]
     Indication: HYPERTENSION
     Route: 048
     Dates: start: 20040101
  4. FELODIPINE [Concomitant]
     Indication: HYPERTENSION
     Route: 065
     Dates: start: 20040101
  5. INDAPAMIDE [Concomitant]
     Indication: POLYURIA
     Route: 065
     Dates: start: 20040101
  6. ASPIRIN AND DIPYRIDAMOLE [Concomitant]
     Indication: TRANSIENT ISCHAEMIC ATTACK
     Route: 048

REACTIONS (2)
  - ANAPHYLACTIC SHOCK [None]
  - RASH [None]
